FAERS Safety Report 10975370 (Version 1)
Quarter: 2015Q2

REPORT INFORMATION
  Report Type: Spontaneous
  Country: US (occurrence: US)
  Receive Date: 20150401
  Receipt Date: 20150401
  Transmission Date: 20150821
  Serious: Yes (Hospitalization, Other)
  Sender: FDA-Public Use
  Company Number: US-GLAXOSMITHKLINE-US2015GSK042621

PATIENT
  Age: 63 Year
  Sex: Female

DRUGS (1)
  1. ADVAIR HFA [Suspect]
     Active Substance: FLUTICASONE PROPIONATE\SALMETEROL XINAFOATE
     Indication: ASTHMA
     Dosage: UNK, U
     Route: 065
     Dates: start: 2012

REACTIONS (8)
  - Clostridium difficile infection [Unknown]
  - Enterocolitis [Not Recovered/Not Resolved]
  - Gastrointestinal disorder [Unknown]
  - Hospitalisation [Unknown]
  - Dysbacteriosis [Unknown]
  - Probiotic therapy [Unknown]
  - Diarrhoea [Unknown]
  - Crohn^s disease [Not Recovered/Not Resolved]

NARRATIVE: CASE EVENT DATE: 2014
